FAERS Safety Report 19877394 (Version 1)
Quarter: 2021Q3

REPORT INFORMATION
  Report Type: Spontaneous
  Country: US (occurrence: US)
  Receive Date: 20210924
  Receipt Date: 20210924
  Transmission Date: 20211014
  Serious: No
  Sender: FDA-Public Use
  Company Number: US-ALLERGAN-2125524US

PATIENT
  Sex: Female
  Weight: 69.39 kg

DRUGS (1)
  1. SUCRALFATE ORAL SUSPENSION [Suspect]
     Active Substance: SUCRALFATE
     Indication: GASTROOESOPHAGEAL REFLUX DISEASE
     Dosage: 10 ML 3 TO 4 TIMES PER DAY
     Dates: start: 202105

REACTIONS (2)
  - Throat irritation [Recovered/Resolved]
  - Product taste abnormal [Unknown]
